FAERS Safety Report 6038465-4 (Version None)
Quarter: 2009Q1

REPORT INFORMATION
  Report Type: 
  Country: None (occurrence: None)
  Receive Date: 20090115
  Receipt Date: 20080929
  Transmission Date: 20090719
  Serious: No
  Sender: FDA-Public Use
  Company Number: US-KINGPHARMUSA00001-K200801154

PATIENT
  Age: 33 Year
  Sex: Male

DRUGS (1)
  1. EPIPEN [Suspect]
     Dosage: UNK, SINGLE

REACTIONS (2)
  - ACCIDENTAL EXPOSURE [None]
  - PAIN [None]
